FAERS Safety Report 11210194 (Version 2)
Quarter: 2015Q3

REPORT INFORMATION
  Report Type: Report from Study
  Country: ES (occurrence: ES)
  Receive Date: 20150622
  Receipt Date: 20150702
  Transmission Date: 20151125
  Serious: Yes (Death, Other)
  Sender: FDA-Public Use
  Company Number: ES-GILEAD-2015-0149443

PATIENT
  Sex: Male

DRUGS (1)
  1. IDELALISIB [Suspect]
     Active Substance: IDELALISIB
     Indication: CHRONIC LYMPHOCYTIC LEUKAEMIA
     Dosage: 150 MG, BID
     Route: 048
     Dates: start: 20141212, end: 20150416

REACTIONS (3)
  - Eczema [Not Recovered/Not Resolved]
  - Pneumonia [Unknown]
  - Respiratory tract infection [Fatal]

NARRATIVE: CASE EVENT DATE: 201503
